FAERS Safety Report 23733134 (Version 1)
Quarter: 2024Q2

REPORT INFORMATION
  Report Type: Spontaneous
  Country: US (occurrence: US)
  Receive Date: 20240411
  Receipt Date: 20240411
  Transmission Date: 20240715
  Serious: No
  Sender: FDA-Public Use
  Company Number: US-PFIZER INC-202400081203

PATIENT
  Age: 42 Year
  Sex: Female

DRUGS (1)
  1. PROCARDIA XL [Suspect]
     Active Substance: NIFEDIPINE
     Dosage: 30 MG ONCE DAILY
     Dates: start: 20240318, end: 20240405

REACTIONS (7)
  - Oropharyngeal pain [Recovering/Resolving]
  - Pyrexia [Recovering/Resolving]
  - Rash [Recovering/Resolving]
  - Respiratory disorder [Recovering/Resolving]
  - Sinus disorder [Recovering/Resolving]
  - Epistaxis [Recovering/Resolving]
  - Ear congestion [Recovering/Resolving]

NARRATIVE: CASE EVENT DATE: 20240329
